FAERS Safety Report 8840413 (Version 1)
Quarter: 2012Q4

REPORT INFORMATION
  Report Type: 
  Country: US (occurrence: US)
  Receive Date: 20121015
  Receipt Date: 20121015
  Transmission Date: 20130627
  Serious: Yes (Hospitalization)
  Sender: FDA-Public Use
  Company Number: US-ROCHE-1141212

PATIENT
  Age: 11 Year
  Sex: Male
  Weight: 28.4 kg

DRUGS (2)
  1. PROTROPIN [Suspect]
     Indication: GROWTH HORMONE DEFICIENCY
     Route: 058
  2. ZYRTEC [Concomitant]

REACTIONS (2)
  - Abdominal pain [Unknown]
  - Hypersensitivity [Unknown]
